FAERS Safety Report 10034500 (Version 1)
Quarter: 2014Q1

REPORT INFORMATION
  Report Type: Spontaneous
  Country: US (occurrence: None)
  Receive Date: 20140321
  Receipt Date: 20140321
  Transmission Date: 20141002
  Serious: Yes (Hospitalization)
  Sender: FDA-Public Use
  Company Number: UTC-045772

PATIENT
  Age: 33 Year
  Sex: Female
  Weight: 81.64 kg

DRUGS (3)
  1. REMODULIN [Suspect]
     Indication: PULMONARY ARTERIAL HYPERTENSION
     Dosage: 0.006 UG/KG, 1 IN 1 MIN
     Route: 058
     Dates: start: 20130920
  2. TYVASO [Concomitant]
  3. LETAIRIS [Concomitant]

REACTIONS (1)
  - Lung infection [None]
